FAERS Safety Report 23923344 (Version 1)
Quarter: 2024Q2

REPORT INFORMATION
  Report Type: Report from Study
  Country: US (occurrence: US)
  Receive Date: 20240531
  Receipt Date: 20240531
  Transmission Date: 20240716
  Serious: Yes (Other)
  Sender: FDA-Public Use
  Company Number: US-GILEAD-2024-0674556

PATIENT
  Age: 44 Year
  Sex: Female

DRUGS (3)
  1. AMBRISENTAN [Suspect]
     Active Substance: AMBRISENTAN
     Indication: Pulmonary arterial hypertension
     Dosage: 10 MG, QD
     Route: 065
     Dates: start: 201612
  2. REMODULIN [Suspect]
     Active Substance: TREPROSTINIL
     Indication: Pulmonary arterial hypertension
     Dosage: 101.19  MILLILITRE
     Route: 065
     Dates: start: 202111
  3. ADCIRCA [Concomitant]
     Active Substance: TADALAFIL
     Indication: Pulmonary arterial hypertension
     Dosage: 40 MG, QD
     Dates: start: 202201

REACTIONS (8)
  - Dyspnoea at rest [Not Recovered/Not Resolved]
  - Infusion site pain [Unknown]
  - Infusion site pruritus [Unknown]
  - Infusion site irritation [Recovering/Resolving]
  - COVID-19 [Unknown]
  - Hypotension [Unknown]
  - Fatigue [Recovered/Resolved]
  - Dyspnoea exertional [Not Recovered/Not Resolved]
